FAERS Safety Report 7593246-5 (Version None)
Quarter: 2011Q3

REPORT INFORMATION
  Report Type: 
  Country: None (occurrence: None)
  Receive Date: 20110706
  Receipt Date: 20110628
  Transmission Date: 20111222
  Serious: Yes (Hospitalization, Other)
  Sender: FDA-Public Use
  Company Number: DE-GENZYME-THYM-1002566

PATIENT
  Sex: Female
  Weight: 53 kg

DRUGS (4)
  1. THYMOGLOBULIN [Suspect]
     Indication: RENAL TRANSPLANT
     Dosage: 90 MG, QD
     Route: 042
     Dates: start: 20100430, end: 20100502
  2. MYCOPHENOLATE MEFETIL [Suspect]
     Indication: RENAL TRANSPLANT
     Dosage: 1000 MG, BID
     Dates: start: 20100427, end: 20110103
  3. TACROLIMUS [Suspect]
     Indication: RENAL TRANSPLANT
     Dosage: 5 MG, QD
     Dates: start: 20100427, end: 20110103
  4. PREDNISOLONE [Suspect]
     Indication: RENAL TRANSPLANT
     Dosage: 2.5 MG, QD
     Dates: start: 20100427, end: 20101216

REACTIONS (6)
  - TUBULOINTERSTITIAL NEPHRITIS [None]
  - DIABETES MELLITUS [None]
  - HUMAN POLYOMAVIRUS INFECTION [None]
  - HYPOTENSION [None]
  - ANAEMIA [None]
  - BK VIRUS INFECTION [None]
